FAERS Safety Report 23422713 (Version 4)
Quarter: 2025Q3

REPORT INFORMATION
  Report Type: Report from Study
  Country: KR (occurrence: KR)
  Receive Date: 20240119
  Receipt Date: 20250728
  Transmission Date: 20251021
  Serious: Yes (Hospitalization)
  Sender: ROCHE
  Company Number: KR-ROCHE-3480390

PATIENT
  Age: 51 Year
  Sex: Male
  Weight: 90.7 kg

DRUGS (4)
  1. ADO-TRASTUZUMAB EMTANSINE [Suspect]
     Active Substance: ADO-TRASTUZUMAB EMTANSINE
     Indication: Rectal cancer
     Route: 042
     Dates: start: 20231129, end: 20231129
  2. ADO-TRASTUZUMAB EMTANSINE [Suspect]
     Active Substance: ADO-TRASTUZUMAB EMTANSINE
     Route: 042
     Dates: start: 20231220, end: 20231220
  3. ADO-TRASTUZUMAB EMTANSINE [Suspect]
     Active Substance: ADO-TRASTUZUMAB EMTANSINE
     Route: 042
     Dates: start: 20240118, end: 20240118
  4. ADO-TRASTUZUMAB EMTANSINE [Suspect]
     Active Substance: ADO-TRASTUZUMAB EMTANSINE
     Route: 042
     Dates: start: 20240213, end: 20240213

REACTIONS (8)
  - Haematuria [Recovered/Resolved]
  - Platelet count decreased [Recovered/Resolved]
  - Liver function test increased [Not Recovered/Not Resolved]
  - Pneumonia [Recovered/Resolved]
  - Epistaxis [Recovered/Resolved]
  - Melaena [Recovered/Resolved]
  - Anaemia [Not Recovered/Not Resolved]
  - Pyrexia [Recovered/Resolved]

NARRATIVE: CASE EVENT DATE: 20231205
